FAERS Safety Report 6603325-4 (Version None)
Quarter: 2010Q1

REPORT INFORMATION
  Report Type: 
  Country: None (occurrence: None)
  Receive Date: 20100226
  Receipt Date: 20090127
  Transmission Date: 20100710
  Serious: No
  Sender: FDA-Public Use
  Company Number: A0765479A

PATIENT
  Sex: Female

DRUGS (9)
  1. VALTREX [Suspect]
     Indication: GENITAL HERPES
     Dosage: 1G PER DAY
     Route: 048
     Dates: start: 20090119
  2. ELMIRON [Concomitant]
  3. AVAPRO [Concomitant]
  4. SYNTHROID [Concomitant]
  5. LOPRESSOR [Concomitant]
  6. ALDACTONE [Concomitant]
  7. TRICOR [Concomitant]
  8. SIMVASTATIN [Concomitant]
  9. IMODIUM [Concomitant]

REACTIONS (1)
  - DIARRHOEA [None]
